FAERS Safety Report 4337098-5 (Version None)
Quarter: 2004Q1

REPORT INFORMATION
  Report Type: 
  Country: None (occurrence: None)
  Receive Date: 20040329
  Receipt Date: 20031126
  Transmission Date: 20041129
  Serious: No
  Sender: FDA-Public Use
  Company Number: USA031253521

PATIENT
  Age: 15 Year
  Sex: Female
  Weight: 52 kg

DRUGS (2)
  1. STRATTERA [Suspect]
     Indication: ATTENTION DEFICIT/HYPERACTIVITY DISORDER
     Dosage: 40 MG/DAY
     Dates: start: 20031126
  2. BENADRYL [Concomitant]

REACTIONS (6)
  - AFFECT LABILITY [None]
  - AGITATION [None]
  - ANXIETY [None]
  - ASTHENIA [None]
  - FATIGUE [None]
  - NERVOUSNESS [None]
